FAERS Safety Report 4374899-1 (Version None)
Quarter: 2004Q2

REPORT INFORMATION
  Report Type: 
  Country: None (occurrence: None)
  Receive Date: 20040603
  Receipt Date: 20031114
  Transmission Date: 20050107
  Serious: Yes (Hospitalization)
  Sender: FDA-Public Use
  Company Number: 200319882US

PATIENT
  Age: 75 Year
  Sex: Male

DRUGS (3)
  1. LOVENOX [Suspect]
     Dosage: QD
  2. WARFARIN SODIUM [Suspect]
  3. LEVOFLOXACIN [Concomitant]

REACTIONS (2)
  - HAEMORRHAGE [None]
  - MELAENA [None]
